FAERS Safety Report 18882796 (Version 3)
Quarter: 2021Q1

REPORT INFORMATION
  Report Type: Spontaneous
  Country: US (occurrence: US)
  Receive Date: 20210211
  Receipt Date: 20210306
  Transmission Date: 20210420
  Serious: Yes (Life-Threatening)
  Sender: FDA-Public Use
  Company Number: NVSC2021US028973

PATIENT
  Sex: Female

DRUGS (2)
  1. VOTRIENT [Suspect]
     Active Substance: PAZOPANIB HYDROCHLORIDE
     Indication: MALIGNANT CONNECTIVE TISSUE NEOPLASM
     Dosage: 400 MG, QD(DAILY FOR 2 WEEKS)
     Route: 048
     Dates: start: 20201210
  2. VOTRIENT [Suspect]
     Active Substance: PAZOPANIB HYDROCHLORIDE
     Dosage: 800 MG, QD
     Route: 065
     Dates: start: 202012

REACTIONS (2)
  - Wound [Unknown]
  - Terminal state [Unknown]
